FAERS Safety Report 7987617-2 (Version None)
Quarter: 2011Q4

REPORT INFORMATION
  Report Type: 
  Country: None (occurrence: None)
  Receive Date: 20111216
  Receipt Date: 20110310
  Transmission Date: 20120403
  Serious: Yes (Other)
  Sender: FDA-Public Use
  Company Number: US-BRISTOL-MYERS SQUIBB COMPANY-14941793

PATIENT
  Age: 41 Year
  Sex: Male
  Weight: 64 kg

DRUGS (6)
  1. TOPAMAX [Concomitant]
  2. KEPPRA [Concomitant]
  3. CHOLECALCIFEROL [Concomitant]
  4. ABILIFY [Suspect]
     Indication: BIPOLAR I DISORDER
     Dosage: DOSE INCREASED FROM 5MG TO 10MG AND 15MG
     Dates: start: 20071101, end: 20091101
  5. CLONAZEPAM [Concomitant]
  6. ZOLOFT [Concomitant]

REACTIONS (3)
  - CONVULSION [None]
  - SLEEP APNOEA SYNDROME [None]
  - HAND FRACTURE [None]
